FAERS Safety Report 8423338-X (Version None)
Quarter: 2012Q2

REPORT INFORMATION
  Report Type: 
  Country: None (occurrence: None)
  Receive Date: 20120608
  Receipt Date: 20120605
  Transmission Date: 20120825
  Serious: Yes (Other)
  Sender: FDA-Public Use
  Company Number: US-PFIZER INC-2012136154

PATIENT
  Sex: Female

DRUGS (7)
  1. PRAVASTATIN [Concomitant]
     Dosage: UNK
  2. LISINOPRIL [Concomitant]
     Dosage: UNK
  3. LYRICA [Suspect]
     Dosage: 150 MG, 1 TAB, 2X/DAY
  4. NEXIUM [Concomitant]
     Dosage: UNK
  5. FIORINAL [Concomitant]
     Dosage: UNK
  6. LANTUS [Concomitant]
     Dosage: UNK
  7. ACTOS [Concomitant]
     Dosage: UNK

REACTIONS (5)
  - HYPERTENSION [None]
  - GASTROOESOPHAGEAL REFLUX DISEASE [None]
  - HYPERLIPIDAEMIA [None]
  - DIABETES MELLITUS [None]
  - FIBROMYALGIA [None]
